FAERS Safety Report 6175757-2 (Version None)
Quarter: 2009Q2

REPORT INFORMATION
  Report Type: 
  Country: None (occurrence: None)
  Receive Date: 20090501
  Receipt Date: 20090421
  Transmission Date: 20091009
  Serious: Yes (Death)
  Sender: FDA-Public Use
  Company Number: JP-WYE-H09133009

PATIENT
  Sex: Male

DRUGS (15)
  1. AMIODARONE [Suspect]
     Indication: VENTRICULAR FIBRILLATION
     Route: 048
     Dates: start: 20081006
  2. SIGMART [Concomitant]
     Indication: CARDIOMYOPATHY
     Route: 042
     Dates: start: 20081002
  3. OMEGACIN [Concomitant]
     Indication: CARDIOMYOPATHY
     Route: 042
     Dates: start: 20081002
  4. NORADRENALINE [Concomitant]
     Indication: CARDIOMYOPATHY
     Dosage: DOSE UNKNOWN
     Route: 042
     Dates: start: 20081002
  5. SHINBIT [Concomitant]
     Indication: VENTRICULAR FIBRILLATION
     Route: 042
     Dates: start: 20081002
  6. LASIX [Concomitant]
     Indication: CARDIOMYOPATHY
     Route: 042
     Dates: start: 20081002
  7. INOVAN [Concomitant]
     Indication: CARDIOMYOPATHY
     Dosage: DOSE UNKNOWN
     Route: 042
     Dates: start: 20081002
  8. DOBUTREX [Concomitant]
     Indication: CARDIOMYOPATHY
     Dosage: DOSE UNKNOWN
     Route: 042
     Dates: start: 20081002
  9. ACETYLSALICYLIC ACID [Concomitant]
     Indication: CARDIOMYOPATHY
     Route: 048
     Dates: start: 20081002
  10. TAKEPRON [Concomitant]
     Indication: CARDIOMYOPATHY
     Route: 048
     Dates: start: 20081002
  11. ANCARON [Suspect]
     Indication: VENTRICULAR FIBRILLATION
     Dosage: RAPID INFUSION, (CONCENTRATION 12.5 MG/ML) 10 ML/MIN FROM 12:00 AM TO 12:10 AM
     Route: 042
     Dates: start: 20081002, end: 20081002
  12. ANCARON [Suspect]
     Dosage: LOADING INFUSION, (CONCENTRATION 3 MG/ML) 4 ML/HR FROM 12:10AM TO 06:00 PM
     Route: 042
     Dates: start: 20081002, end: 20081002
  13. ANCARON [Suspect]
     Dosage: MAINTENANCE INFUSION, (CONCENTRATION 3 MG/ML) 2 ML/HR FROM 06:00 PM
     Dates: start: 20081002, end: 20081005
  14. ANCARON [Suspect]
     Route: 042
     Dates: start: 20081005, end: 20081006
  15. MIDAZOLAM HYDROCHLORIDE [Concomitant]
     Indication: CARDIOMYOPATHY
     Dosage: DOSE UNKNOWN
     Route: 042
     Dates: start: 20081002

REACTIONS (1)
  - DEATH [None]
